FAERS Safety Report 9350293 (Version 1)
Quarter: 2013Q2

REPORT INFORMATION
  Report Type: Report from Study
  Country: AR (occurrence: AR)
  Receive Date: 20130617
  Receipt Date: 20130617
  Transmission Date: 20140414
  Serious: Yes (Other)
  Sender: FDA-Public Use
  Company Number: AR-ROCHE-1237074

PATIENT
  Sex: Female

DRUGS (1)
  1. RANIBIZUMAB [Suspect]
     Indication: EYE DISORDER
     Route: 050
     Dates: start: 2012

REACTIONS (1)
  - Diabetes mellitus [Recovering/Resolving]
